FAERS Safety Report 15069339 (Version 1)
Quarter: 2018Q2

REPORT INFORMATION
  Report Type: Spontaneous
  Country: US (occurrence: US)
  Receive Date: 20180626
  Receipt Date: 20180626
  Transmission Date: 20180711
  Serious: No
  Sender: FDA-Public Use
  Company Number: US-AMGEN-USASP2017108549

PATIENT
  Age: 54 Year
  Sex: Male
  Weight: 102.2 kg

DRUGS (1)
  1. NEULASTA [Suspect]
     Active Substance: PEGFILGRASTIM
     Indication: NEUTROPENIA
     Dosage: 6 MG, UNK
     Route: 058

REACTIONS (3)
  - Accidental exposure to product [Unknown]
  - Unintentional medical device removal [Unknown]
  - Night sweats [Unknown]

NARRATIVE: CASE EVENT DATE: 201707
